FAERS Safety Report 5995543-3 (Version None)
Quarter: 2008Q4

REPORT INFORMATION
  Report Type: 
  Country: None (occurrence: None)
  Receive Date: 20081212
  Receipt Date: 20081201
  Transmission Date: 20090506
  Serious: Yes (Other)
  Sender: FDA-Public Use
  Company Number: US-ROCHE-600574

PATIENT
  Age: 10 Year
  Sex: Male
  Weight: 22.7 kg

DRUGS (2)
  1. TAMIFLU [Suspect]
     Route: 065
  2. TAMIFLU [Suspect]
     Dosage: REDUCED TO 3/4TEASPOON BID
     Route: 065

REACTIONS (3)
  - DELUSION [None]
  - NIGHTMARE [None]
  - SLEEP TERROR [None]
